FAERS Safety Report 24062167 (Version 1)
Quarter: 2024Q3

REPORT INFORMATION
  Report Type: Spontaneous
  Country: US (occurrence: None)
  Receive Date: 20240707
  Receipt Date: 20240707
  Transmission Date: 20241017
  Serious: Yes (Disabling, Other)
  Sender: Public
  Company Number: None

PATIENT
  Age: 72 Year
  Sex: Female
  Weight: 75.6 kg

DRUGS (8)
  1. SIMPONI ARIA [Suspect]
     Active Substance: GOLIMUMAB
     Indication: Psoriatic arthropathy
     Dosage: OTHER FREQUENCY : MONTHLY INFUSION;?
     Route: 042
     Dates: start: 20240325, end: 20240423
  2. LIPITOR [Concomitant]
     Active Substance: ATORVASTATIN CALCIUM
  3. fluoxitene [Concomitant]
  4. ESTRADIOL TRANSDERMAL SYSTEM [Concomitant]
     Active Substance: ESTRADIOL
  5. METHOTREXATE [Concomitant]
     Active Substance: METHOTREXATE
  6. VITAMIN D [Concomitant]
     Active Substance: VITAMIN D NOS
  7. FAMOTIDINE [Concomitant]
     Active Substance: FAMOTIDINE
  8. FOLATE SODIUM [Concomitant]
     Active Substance: FOLATE SODIUM

REACTIONS (7)
  - Arthralgia [None]
  - Myalgia [None]
  - Nausea [None]
  - Lethargy [None]
  - Urticaria [None]
  - Urticaria [None]
  - Fatigue [None]

NARRATIVE: CASE EVENT DATE: 20240406
